FAERS Safety Report 8683022 (Version 2)
Quarter: 2012Q4

REPORT INFORMATION
  Report Type: Spontaneous
  Country: JP (occurrence: None)
  Receive Date: 20120709
  Receipt Date: 20120914
  Transmission Date: 20130627
  Serious: Yes (Disabling)
  Sender: FDA-Public Use
  Company Number: TCI2012A03325

PATIENT
  Age: 68 Year
  Sex: Female

DRUGS (3)
  1. ACTOS [Suspect]
     Indication: TYPE 2 DIABETES MELLITUS
     Dosage: 15 MG (15 MG, 1D), PER ORAL
     Route: 048
     Dates: start: 20080414, end: 20110414
  2. GLIMICRON (GLICLAZIDE) [Concomitant]
  3. MELBIN (METFORMIN HYDROCHLORIDE) [Concomitant]

REACTIONS (4)
  - Diabetic retinopathy [None]
  - Macular oedema [None]
  - Diabetic retinopathy [None]
  - Cataract [None]
